FAERS Safety Report 25808883 (Version 1)
Quarter: 2025Q3

REPORT INFORMATION
  Report Type: Spontaneous
  Country: IR (occurrence: IR)
  Receive Date: 20250916
  Receipt Date: 20250916
  Transmission Date: 20251021
  Serious: Yes (Life-Threatening, Hospitalization, Other)
  Sender: PFIZER
  Company Number: IR-PFIZER INC-PV202500110552

PATIENT
  Age: 61 Year
  Sex: Female

DRUGS (10)
  1. DOXORUBICIN HYDROCHLORIDE [Suspect]
     Active Substance: DOXORUBICIN HYDROCHLORIDE
     Indication: Diffuse large B-cell lymphoma
     Dosage: UNK, 2X/WEEK (EIGHT CYCLES, R-CHOP REGIMEN)
     Dates: end: 202412
  2. DOXORUBICIN HYDROCHLORIDE [Suspect]
     Active Substance: DOXORUBICIN HYDROCHLORIDE
     Indication: Primary cardiac lymphoma
  3. CYCLOPHOSPHAMIDE [Suspect]
     Active Substance: CYCLOPHOSPHAMIDE
     Indication: Diffuse large B-cell lymphoma
     Dosage: UNK, 2X/WEEK (EIGHT CYCLES, R-CHOP REGIMEN)
     Dates: end: 202412
  4. CYCLOPHOSPHAMIDE [Suspect]
     Active Substance: CYCLOPHOSPHAMIDE
     Indication: Primary cardiac lymphoma
  5. VINCRISTINE [Suspect]
     Active Substance: VINCRISTINE
     Indication: Diffuse large B-cell lymphoma
     Dosage: UNK, 2X/WEEK (EIGHT CYCLES, R-CHOP REGIMEN)
     Dates: end: 202412
  6. VINCRISTINE [Suspect]
     Active Substance: VINCRISTINE
     Indication: Primary cardiac lymphoma
  7. RITUXIMAB [Suspect]
     Active Substance: RITUXIMAB
     Indication: Diffuse large B-cell lymphoma
     Dosage: UNK, 2X/WEEK (EIGHT CYCLES, R-CHOP REGIMEN)
     Dates: end: 202412
  8. RITUXIMAB [Suspect]
     Active Substance: RITUXIMAB
     Indication: Primary cardiac lymphoma
  9. PREDNISOLONE [Suspect]
     Active Substance: PREDNISOLONE
     Indication: Diffuse large B-cell lymphoma
     Dosage: UNK, 2X/WEEK (EIGHT CYCLES, R-CHOP REGIMEN)
     Dates: end: 202412
  10. PREDNISOLONE [Suspect]
     Active Substance: PREDNISOLONE
     Indication: Primary cardiac lymphoma

REACTIONS (2)
  - Drug ineffective [Unknown]
  - Dyspnoea [Unknown]
